FAERS Safety Report 19125978 (Version 3)
Quarter: 2021Q2

REPORT INFORMATION
  Report Type: Report from Study
  Country: None (occurrence: US)
  Receive Date: 20210412
  Receipt Date: 20210420
  Transmission Date: 20210717
  Serious: Yes (Other)
  Sender: FDA-Public Use
  Company Number: US-ABBVIE-21K-163-3849949-00

PATIENT
  Sex: Female
  Weight: 77 kg

DRUGS (3)
  1. MODERNA COVID?19 VACCINE [Suspect]
     Active Substance: CX-024414
     Dosage: SECOND SHOT, MODERNA
     Route: 030
  2. HUMIRA [Suspect]
     Active Substance: ADALIMUMAB
     Indication: CROHN^S DISEASE
     Dosage: CITRATE FREE
     Route: 058
     Dates: start: 20171128
  3. MODERNA COVID?19 VACCINE [Suspect]
     Active Substance: CX-024414
     Indication: COVID-19 IMMUNISATION
     Dosage: FIRST SHOT, MODERNA
     Route: 030

REACTIONS (6)
  - Fistula discharge [Not Recovered/Not Resolved]
  - Chills [Unknown]
  - Colonic fistula [Recovering/Resolving]
  - Pyrexia [Recovered/Resolved]
  - Intestinal fistula infection [Unknown]
  - Headache [Unknown]
